FAERS Safety Report 4399556-7 (Version None)
Quarter: 2004Q3

REPORT INFORMATION
  Report Type: 
  Country: None (occurrence: None)
  Receive Date: 20040712
  Receipt Date: 20040624
  Transmission Date: 20050211
  Serious: Yes (Hospitalization)
  Sender: FDA-Public Use
  Company Number: F01200401573

PATIENT
  Age: 51 Year
  Sex: Male

DRUGS (7)
  1. OXALIPLATIN - SOLUTION - 100MG/M2 [Suspect]
     Indication: ADENOCARCINOMA PANCREAS
     Dosage: 100 MG/M2 ON DAY 2, Q2W
     Route: 042
     Dates: start: 20040109, end: 20040109
  2. GEMZAR [Suspect]
     Dosage: 1000 MG/M2 ON DAY 1, Q2W
     Route: 042
     Dates: start: 20040108, end: 20040108
  3. PANCREATIN [Concomitant]
  4. METOCLOPRAMIDE [Concomitant]
  5. DOMPERIDONE [Concomitant]
  6. OMEPRAZOLE [Concomitant]
  7. POTASSIUM GLUCONATE [Concomitant]

REACTIONS (2)
  - GENERAL PHYSICAL HEALTH DETERIORATION [None]
  - WEIGHT DECREASED [None]
